FAERS Safety Report 23632472 (Version 1)
Quarter: 2024Q1

REPORT INFORMATION
  Report Type: Spontaneous
  Country: US (occurrence: US)
  Receive Date: 20240314
  Receipt Date: 20240314
  Transmission Date: 20240409
  Serious: No
  Sender: FDA-Public Use
  Company Number: US-SA-SAC20240313000617

PATIENT
  Sex: Female

DRUGS (7)
  1. DUPIXENT [Suspect]
     Active Substance: DUPILUMAB
     Indication: Dermatitis atopic
     Dosage: 300 MG, QOW
     Route: 058
  2. AMLODIPINE [Concomitant]
     Active Substance: AMLODIPINE BESYLATE
  3. AMOXAPINE [Concomitant]
     Active Substance: AMOXAPINE
  4. GABAPENTIN [Concomitant]
     Active Substance: GABAPENTIN
  5. MYRBETRIQ [Concomitant]
     Active Substance: MIRABEGRON
  6. PROLIA [Concomitant]
     Active Substance: DENOSUMAB
  7. VALSARTAN [Concomitant]
     Active Substance: VALSARTAN

REACTIONS (1)
  - Abdominal discomfort [Not Recovered/Not Resolved]
